FAERS Safety Report 8431192-5 (Version None)
Quarter: 2012Q2

REPORT INFORMATION
  Report Type: 
  Country: None (occurrence: None)
  Receive Date: 20120612
  Receipt Date: 20120609
  Transmission Date: 20120825
  Serious: Yes (Death)
  Sender: FDA-Public Use
  Company Number: PHHY2012MX050021

PATIENT
  Sex: Male

DRUGS (2)
  1. EXFORGE HCT [Suspect]
     Indication: HYPERTENSION
     Dosage: 2 TABLETS (320/10/25 MG) PER DAY. (ONE IN THE MORNING AND ONE IN THE NIGHT)
     Dates: start: 20110401
  2. FUROSEMIDE [Concomitant]
     Indication: RENAL FAILURE
     Dosage: UNK

REACTIONS (3)
  - HYPERTENSION [None]
  - MALAISE [None]
  - RENAL FAILURE [None]
